FAERS Safety Report 14800893 (Version 1)
Quarter: 2018Q2

REPORT INFORMATION
  Report Type: Spontaneous
  Country: NL (occurrence: NL)
  Receive Date: 20180424
  Receipt Date: 20180424
  Transmission Date: 20180711
  Serious: Yes (Other)
  Sender: FDA-Public Use
  Company Number: NL-MYLANLABS-2018M1025825

PATIENT
  Age: 41 Year
  Sex: Female

DRUGS (13)
  1. PREDNISONE. [Concomitant]
     Active Substance: PREDNISONE
     Indication: LUPUS NEPHRITIS
     Dosage: 10 MG, QD
  2. NICARDIPINE [Suspect]
     Active Substance: NICARDIPINE
     Indication: HYPERTENSION
     Dosage: UNK UNK, UNKNOWN FREQ.
  3. ALFAMETILDOPA [Concomitant]
     Active Substance: METHYLDOPA
     Indication: HYPERTENSION
     Dosage: UNK UNK, UNKNOWN FREQ.
  4. CARBASALATE CALCIUM [Concomitant]
     Active Substance: CARBASPIRIN
     Indication: PRODUCT USED FOR UNKNOWN INDICATION
     Dosage: 100 MG, QD
  5. METHYLPREDNISOLONE. [Concomitant]
     Active Substance: METHYLPREDNISOLONE
     Indication: LUPUS NEPHRITIS
     Dosage: UNK UNK, UNKNOWN FREQ.
     Route: 042
  6. ACENOCOUMAROL [Concomitant]
     Active Substance: ACENOCOUMAROL
     Indication: ANTIPHOSPHOLIPID SYNDROME
     Dosage: UNK UNK, UNKNOWN FREQ.
  7. AZATHIOPRINE. [Concomitant]
     Active Substance: AZATHIOPRINE
     Indication: LUPUS NEPHRITIS
     Dosage: 150 MG, QD
     Route: 065
  8. VITAMIN K [Concomitant]
     Active Substance: PHYTONADIONE
     Indication: ANTIPHOSPHOLIPID SYNDROME
     Dosage: UNK UNK, UNKNOWN FREQ.
  9. HEPARIN [Concomitant]
     Active Substance: HEPARIN SODIUM
     Indication: PORTAL VEIN THROMBOSIS
     Dosage: UNK UNK, UNKNOWN FREQ.(LOW MOLECULAR WEIGHT)
  10. ENALAPRIL [Concomitant]
     Active Substance: ENALAPRIL
     Indication: HYPERTENSION
     Dosage: UNK UNK, UNKNOWN FREQ.
  11. MAGNESIUM [Concomitant]
     Active Substance: MAGNESIUM
     Indication: HYPERTENSION
     Dosage: UNK UNK, UNKNOWN FREQ.
  12. NIFEDIPINE. [Concomitant]
     Active Substance: NIFEDIPINE
     Indication: HYPERTENSION
     Dosage: UNK UNK, UNKNOWN FREQ.
  13. METHYLDOPA. [Concomitant]
     Active Substance: METHYLDOPA
     Indication: HYPERTENSION
     Dosage: UNK UNK, UNKNOWN FREQ.

REACTIONS (3)
  - Premature delivery [Recovered/Resolved]
  - Maternal exposure during pregnancy [Recovered/Resolved]
  - Drug ineffective [Unknown]
